FAERS Safety Report 7100029-9 (Version None)
Quarter: 2010Q4

REPORT INFORMATION
  Report Type: 
  Country: None (occurrence: None)
  Receive Date: 20101112
  Receipt Date: 20101029
  Transmission Date: 20110411
  Serious: Yes (Other)
  Sender: FDA-Public Use
  Company Number: US-PURDUE-USA-2010-0048139

PATIENT
  Sex: Male
  Weight: 81.633 kg

DRUGS (4)
  1. OXYCONTIN [Suspect]
     Indication: INTERVERTEBRAL DISC DEGENERATION
     Dosage: 80 MG, AM
     Dates: start: 20100919
  2. OXYCONTIN [Suspect]
     Dosage: 40 MG, AC LUNCH
     Dates: start: 20100916
  3. OXYCONTIN [Suspect]
     Dosage: 80 MG, PM
     Dates: start: 20100919
  4. OXYCODONE HCL [Concomitant]
     Indication: BREAKTHROUGH PAIN
     Dosage: 30 MG, PRN

REACTIONS (3)
  - DYSPNOEA [None]
  - PAIN [None]
  - RASH PUSTULAR [None]
